FAERS Safety Report 11668335 (Version 4)
Quarter: 2015Q4

REPORT INFORMATION
  Report Type: Spontaneous
  Country: US (occurrence: US)
  Receive Date: 20151027
  Receipt Date: 20151028
  Transmission Date: 20160304
  Serious: Yes (Death)
  Sender: FDA-Public Use
  Company Number: US-ABBVIE-15P-163-1486944-00

PATIENT
  Age: 60 Year
  Sex: Male

DRUGS (1)
  1. VIEKIRA PAK [Suspect]
     Active Substance: DASABUVIR\OMBITASVIR\PARITAPREVIR\RITONAVIR
     Indication: CHRONIC HEPATITIS C
     Dosage: 3 TABLETS IN AM; 1 TABLET IN PM
     Route: 048
     Dates: start: 201509, end: 20151006

REACTIONS (1)
  - Death [Fatal]

NARRATIVE: CASE EVENT DATE: 20151006
